FAERS Safety Report 5393863-7 (Version None)
Quarter: 2007Q3

REPORT INFORMATION
  Report Type: 
  Country: None (occurrence: None)
  Receive Date: 20070723
  Receipt Date: 20070716
  Transmission Date: 20080115
  Serious: Yes (Hospitalization, Disabling)
  Sender: FDA-Public Use
  Company Number: B0475825A

PATIENT
  Age: 53 Year
  Sex: Female
  Weight: 60 kg

DRUGS (4)
  1. LAMICTAL [Suspect]
     Route: 048
     Dates: start: 20070404, end: 20070506
  2. LAROXYL [Concomitant]
     Dosage: 15DROP AT NIGHT
     Route: 065
  3. PROPOFOL [Concomitant]
     Route: 048
  4. SKENAN [Concomitant]
     Route: 048

REACTIONS (5)
  - CORNEAL LESION [None]
  - DRY EYE [None]
  - EYE IRRITATION [None]
  - OFF LABEL USE [None]
  - VISUAL ACUITY REDUCED [None]
